FAERS Safety Report 5258630-3 (Version None)
Quarter: 2007Q1

REPORT INFORMATION
  Report Type: 
  Country: None (occurrence: None)
  Receive Date: 20070308
  Receipt Date: 20070228
  Transmission Date: 20070707
  Serious: Yes (Hospitalization)
  Sender: FDA-Public Use
  Company Number: JP-ROCHE-483422

PATIENT
  Age: 10 Year
  Sex: Male
  Weight: 28 kg

DRUGS (3)
  1. TAMIFLU [Suspect]
     Route: 048
     Dates: start: 20070201, end: 20070201
  2. MUCODYNE [Concomitant]
     Route: 048
     Dates: start: 20070201, end: 20070201
  3. RELENZA [Concomitant]
     Route: 055
     Dates: start: 20070201, end: 20070205

REACTIONS (3)
  - ABNORMAL BEHAVIOUR [None]
  - DELIRIUM FEBRILE [None]
  - ENCEPHALOPATHY [None]
